FAERS Safety Report 18990224 (Version 3)
Quarter: 2021Q2

REPORT INFORMATION
  Report Type: Spontaneous
  Country: JP (occurrence: JP)
  Receive Date: 20210310
  Receipt Date: 20210409
  Transmission Date: 20210717
  Serious: Yes (Hospitalization)
  Sender: FDA-Public Use
  Company Number: JP-ROCHE-2785529

PATIENT
  Age: 82 Year
  Sex: Male
  Weight: 64 kg

DRUGS (9)
  1. AVASTIN [Suspect]
     Active Substance: BEVACIZUMAB
     Indication: HEPATOCELLULAR CARCINOMA
     Route: 041
     Dates: start: 20201029, end: 20201029
  2. NEXIUM [Concomitant]
     Active Substance: ESOMEPRAZOLE MAGNESIUM
     Route: 065
  3. ITOROL [Concomitant]
     Active Substance: ISOSORBIDE MONONITRATE
     Route: 065
  4. TECENTRIQ [Suspect]
     Active Substance: ATEZOLIZUMAB
     Indication: HEPATOCELLULAR CARCINOMA
     Route: 041
     Dates: start: 20201029
  5. PRAVASTATIN SODIUM. [Concomitant]
     Active Substance: PRAVASTATIN SODIUM
     Route: 065
  6. BUFFERIN (JAPAN) [Concomitant]
     Route: 065
  7. DILTIAZEM HYDROCHLORIDE. [Concomitant]
     Active Substance: DILTIAZEM HYDROCHLORIDE
     Route: 065
  8. LIXIANA [Concomitant]
     Active Substance: EDOXABAN TOSYLATE
  9. EPADEL?S [Concomitant]
     Active Substance: ICOSAPENT ETHYL
     Route: 065

REACTIONS (2)
  - Anal abscess [Recovered/Resolved]
  - Anorectal infection [Recovering/Resolving]

NARRATIVE: CASE EVENT DATE: 202011
